FAERS Safety Report 10435934 (Version 1)
Quarter: 2014Q3

REPORT INFORMATION
  Report Type: Spontaneous
  Country: US (occurrence: US)
  Receive Date: 20140908
  Receipt Date: 20140908
  Transmission Date: 20150326
  Serious: No
  Sender: FDA-Public Use
  Company Number: US-GLAXOSMITHKLINE-A1077677A

PATIENT
  Sex: Female

DRUGS (2)
  1. CARDIAC MEDICATION [Concomitant]
     Active Substance: UNSPECIFIED INGREDIENT
  2. BREO ELLIPTA [Suspect]
     Active Substance: FLUTICASONE FUROATE\VILANTEROL TRIFENATATE
     Indication: OBSTRUCTIVE AIRWAYS DISORDER
     Route: 055
     Dates: end: 20140615

REACTIONS (3)
  - Palpitations [Recovering/Resolving]
  - Panic attack [Recovering/Resolving]
  - Anxiety [Recovering/Resolving]
